FAERS Safety Report 11742043 (Version 1)
Quarter: 2015Q4

REPORT INFORMATION
  Report Type: Spontaneous
  Country: US (occurrence: None)
  Receive Date: 20151113
  Receipt Date: 20151113
  Transmission Date: 20160304
  Serious: Yes (Hospitalization, Disabling)
  Sender: FDA-Public Use
  Company Number: None

PATIENT
  Age: 3 Year
  Sex: Female
  Weight: 14.2 kg

DRUGS (7)
  1. ONCASPAR [Suspect]
     Active Substance: PEGASPARGASE
     Indication: ACUTE LEUKAEMIA
     Route: 042
     Dates: start: 20151022, end: 20151022
  2. DOXORUBICIN [Concomitant]
     Active Substance: DOXORUBICIN
  3. TPN [Concomitant]
     Active Substance: AMINO ACIDS\DEXTROSE\ELECTROLYTES NOS\SOYBEAN OIL
  4. DEXAMETHASONE. [Concomitant]
     Active Substance: DEXAMETHASONE
  5. VANCOMYCIN [Concomitant]
     Active Substance: VANCOMYCIN
  6. VINCRISTINE [Concomitant]
     Active Substance: VINCRISTINE
  7. CEFEPIME [Concomitant]
     Active Substance: CEFEPIME HYDROCHLORIDE

REACTIONS (1)
  - Cerebral thrombosis [None]

NARRATIVE: CASE EVENT DATE: 20151112
